FAERS Safety Report 6539758-4 (Version None)
Quarter: 2010Q1

REPORT INFORMATION
  Report Type: 
  Country: None (occurrence: None)
  Receive Date: 20100115
  Receipt Date: 20100106
  Transmission Date: 20100710
  Serious: Yes (Hospitalization)
  Sender: FDA-Public Use
  Company Number: FR-WYE-H12851710

PATIENT
  Age: 24 Year
  Sex: Female

DRUGS (5)
  1. VENLAFAXINE HYDROCHLORIDE [Suspect]
     Dosage: OVERDOSE AMOUNT UNKNOWN
     Route: 048
  2. DOSULEPIN [Suspect]
     Dosage: UNKNOWN
     Route: 048
  3. CITALOPRAM [Suspect]
     Dosage: UNKNOWN
     Route: 048
  4. HYDROXYZINE [Concomitant]
  5. RISPERIDONE [Suspect]
     Dosage: UNKNOWN
     Route: 048

REACTIONS (18)
  - BUNDLE BRANCH BLOCK LEFT [None]
  - BUNDLE BRANCH BLOCK RIGHT [None]
  - CONVULSION [None]
  - DRUG TOXICITY [None]
  - ELECTROCARDIOGRAM QT PROLONGED [None]
  - HAEMODYNAMIC INSTABILITY [None]
  - HALLUCINATION, VISUAL [None]
  - HYPERKALAEMIA [None]
  - HYPERTHERMIA [None]
  - HYPERTONIA [None]
  - INTENTIONAL OVERDOSE [None]
  - METABOLIC ACIDOSIS [None]
  - MUCOSAL DRYNESS [None]
  - SINUS TACHYCARDIA [None]
  - SUICIDE ATTEMPT [None]
  - TACHYPNOEA [None]
  - TREMOR [None]
  - VENTRICULAR EXTRASYSTOLES [None]
